FAERS Safety Report 5356824-X (Version None)
Quarter: 2007Q2

REPORT INFORMATION
  Report Type: 
  Country: None (occurrence: None)
  Receive Date: 20070614
  Receipt Date: 20070418
  Transmission Date: 20071010
  Serious: No
  Sender: FDA-Public Use
  Company Number: US-ASTRAZENECA-2007UW00370

PATIENT
  Age: 75 Year
  Sex: Female
  Weight: 56.2 kg

DRUGS (4)
  1. ATACAND [Suspect]
     Indication: HYPERTENSION
     Route: 048
  2. ATACAND [Suspect]
     Route: 048
  3. ATENOLOL [Concomitant]
     Route: 048
  4. ANXIETY MEDICATION [Concomitant]

REACTIONS (4)
  - BRADYCARDIA [None]
  - DIZZINESS POSTURAL [None]
  - HEART RATE DECREASED [None]
  - INSOMNIA [None]
